FAERS Safety Report 8855772 (Version 1)
Quarter: 2012Q4

REPORT INFORMATION
  Report Type: 
  Country: GB (occurrence: GB)
  Receive Date: 20121023
  Receipt Date: 20121023
  Transmission Date: 20130627
  Serious: Yes (Other)
  Sender: FDA-Public Use
  Company Number: PHFR2006GB06247

PATIENT
  Sex: Male

DRUGS (3)
  1. CLOZARIL [Suspect]
     Dosage: 275 mg, QD
     Route: 048
  2. SULPIRIDE [Concomitant]
     Dosage: 800 mg, UNK
  3. SULPIRIDE [Concomitant]
     Dosage: 400 mg, UNK

REACTIONS (5)
  - Toxicity to various agents [Unknown]
  - Confusional state [Unknown]
  - Myoclonus [Unknown]
  - Muscle twitching [Unknown]
  - Tachycardia [Unknown]
